FAERS Safety Report 8334740-9 (Version None)
Quarter: 2012Q2

REPORT INFORMATION
  Report Type: 
  Country: None (occurrence: None)
  Receive Date: 20120503
  Receipt Date: 20120425
  Transmission Date: 20120825
  Serious: Yes (Other)
  Sender: FDA-Public Use
  Company Number: US-VERTEX PHARMACEUTICALS INC.-AE-2012-006035

PATIENT
  Sex: Female

DRUGS (6)
  1. INCIVEK [Suspect]
     Route: 048
  2. PEGASYS [Concomitant]
     Route: 058
  3. INCIVEK [Suspect]
     Indication: HEPATITIS C
     Route: 048
     Dates: start: 20111211, end: 20120301
  4. PEGASYS [Concomitant]
     Indication: HEPATITIS C
     Route: 058
     Dates: start: 20111211, end: 20120301
  5. RIBAVIRIN [Concomitant]
     Route: 048
     Dates: start: 20120302
  6. RIBAVIRIN [Concomitant]
     Indication: HEPATITIS C
     Route: 048
     Dates: start: 20111211, end: 20120301

REACTIONS (1)
  - PLATELET COUNT DECREASED [None]
